FAERS Safety Report 22966156 (Version 3)
Quarter: 2023Q4

REPORT INFORMATION
  Report Type: Report from Study
  Country: US (occurrence: US)
  Receive Date: 20230921
  Receipt Date: 20231023
  Transmission Date: 20240110
  Serious: No
  Sender: FDA-Public Use
  Company Number: US-IPSEN Group, Research and Development-2023-20068

PATIENT
  Age: 85 Year
  Sex: Male

DRUGS (17)
  1. SOMATULINE DEPOT [Suspect]
     Active Substance: LANREOTIDE ACETATE
     Indication: Carcinoid tumour of the small bowel
     Route: 065
  2. XERMELO [Suspect]
     Active Substance: TELOTRISTAT ETHYL
     Indication: Product used for unknown indication
     Dosage: 250MG TID WITH FOOD
     Route: 065
     Dates: start: 20230803
  3. AMLODIPINE [Concomitant]
     Active Substance: AMLODIPINE BESYLATE
  4. ASPIRIN [Concomitant]
     Active Substance: ASPIRIN
  5. CALCITRIOL [Concomitant]
     Active Substance: CALCITRIOL
  6. EVEROLIMUS [Concomitant]
     Active Substance: EVEROLIMUS
     Dosage: (ON HOLD FOR TWO WEEKS DUE TO SURGERY 8/11 UNTIL 8/25)
  7. FINASTERIDE [Concomitant]
     Active Substance: FINASTERIDE
  8. FLOMAX [Concomitant]
     Active Substance: TAMSULOSIN HYDROCHLORIDE
  9. ONDANSETRON [Concomitant]
     Active Substance: ONDANSETRON
     Dosage: 8MG PRN
  10. SODIUM BICARBONATE [Concomitant]
     Active Substance: SODIUM BICARBONATE
     Dosage: 650 MG 2 TABS TID
  11. CHOLESTYRAMINE [Concomitant]
     Active Substance: CHOLESTYRAMINE
  12. VITB12 [Concomitant]
     Dosage: NOT TAKING IT AT
  13. VITAMIN D3 [Concomitant]
     Active Substance: CHOLECALCIFEROL
     Dosage: 50K UNITS
  14. VITAMIN D NOS [Concomitant]
     Active Substance: VITAMIN D NOS
     Dosage: 5000 UNIT
  15. VITAMIN E [Concomitant]
     Active Substance: .ALPHA.-TOCOPHEROL
  16. MINERALS\VITAMINS [Concomitant]
     Active Substance: MINERALS\VITAMINS
  17. FISH OIL [Concomitant]
     Active Substance: FISH OIL

REACTIONS (4)
  - Diarrhoea [Unknown]
  - Weight decreased [Unknown]
  - Product dose omission issue [Unknown]
  - Off label use [Unknown]
